FAERS Safety Report 21248788 (Version 1)
Quarter: 2022Q3

REPORT INFORMATION
  Report Type: Spontaneous
  Country: CA (occurrence: CA)
  Receive Date: 20220824
  Receipt Date: 20220824
  Transmission Date: 20221027
  Serious: Yes (Hospitalization)
  Sender: FDA-Public Use
  Company Number: CA-TAKEDA-2022TUS057976

PATIENT
  Age: 82 Year
  Sex: Female
  Weight: 122 kg

DRUGS (8)
  1. HUMAN C1-ESTERASE INHIBITOR [Suspect]
     Active Substance: HUMAN C1-ESTERASE INHIBITOR
     Indication: Hereditary angioedema
     Dosage: 1000 INTERNATIONAL UNIT, 2/WEEK
     Route: 042
  2. HUMAN C1-ESTERASE INHIBITOR [Suspect]
     Active Substance: HUMAN C1-ESTERASE INHIBITOR
     Indication: Hereditary angioedema
     Dosage: 1000 INTERNATIONAL UNIT, 2/WEEK
     Route: 042
  3. HUMAN C1-ESTERASE INHIBITOR [Suspect]
     Active Substance: HUMAN C1-ESTERASE INHIBITOR
     Indication: Hereditary angioedema
     Dosage: 1000 INTERNATIONAL UNIT, 2/WEEK
     Route: 042
  4. HUMAN C1-ESTERASE INHIBITOR [Suspect]
     Active Substance: HUMAN C1-ESTERASE INHIBITOR
     Indication: Prophylaxis
  5. HUMAN C1-ESTERASE INHIBITOR [Suspect]
     Active Substance: HUMAN C1-ESTERASE INHIBITOR
     Indication: Prophylaxis
  6. HUMAN C1-ESTERASE INHIBITOR [Suspect]
     Active Substance: HUMAN C1-ESTERASE INHIBITOR
     Indication: Prophylaxis
  7. DANAZOL [Concomitant]
     Active Substance: DANAZOL
     Dosage: 50 MILLIGRAM, BID
     Route: 065
  8. DANAZOL [Concomitant]
     Active Substance: DANAZOL
     Dosage: 150 MILLIGRAM, QD
     Route: 065

REACTIONS (7)
  - Chronic obstructive pulmonary disease [Unknown]
  - Cough [Unknown]
  - Oedema peripheral [Unknown]
  - Oropharyngeal pain [Unknown]
  - Pericardial effusion [Unknown]
  - Viral pharyngitis [Unknown]
  - Off label use [Unknown]
